FAERS Safety Report 5401612-9 (Version None)
Quarter: 2007Q3

REPORT INFORMATION
  Report Type: 
  Country: None (occurrence: None)
  Receive Date: 20070731
  Receipt Date: 20070725
  Transmission Date: 20080115
  Serious: Yes (Disabling, Other)
  Sender: FDA-Public Use
  Company Number: US-PFIZER INC-2006002584

PATIENT
  Sex: Female
  Weight: 57.6 kg

DRUGS (9)
  1. DEPO-MEDROL [Suspect]
     Indication: SCIATICA
     Route: 008
  2. NEURONTIN [Suspect]
     Indication: SCIATICA
  3. LYRICA [Suspect]
  4. BEXTRA [Suspect]
     Indication: PAIN
  5. CELEBREX [Suspect]
     Indication: PAIN
     Dates: start: 20060801, end: 20060801
  6. PREMARIN [Concomitant]
     Dates: start: 19700101, end: 20050101
  7. ZOCOR [Concomitant]
  8. VALIUM [Concomitant]
  9. HYDROCHLOROTHIAZIDE [Concomitant]

REACTIONS (39)
  - ABASIA [None]
  - AGITATION [None]
  - ANOREXIA [None]
  - ANXIETY [None]
  - ARACHNOIDITIS [None]
  - BACK PAIN [None]
  - BLISTER [None]
  - BLOOD CHOLESTEROL INCREASED [None]
  - BLOOD PRESSURE INCREASED [None]
  - BURNING SENSATION [None]
  - CONFUSIONAL STATE [None]
  - DEHYDRATION [None]
  - DEPRESSION [None]
  - DRUG INEFFECTIVE [None]
  - DYSURIA [None]
  - FACE INJURY [None]
  - FLUID RETENTION [None]
  - HEADACHE [None]
  - HEPATIC ENZYME INCREASED [None]
  - HYPOAESTHESIA [None]
  - IMPAIRED WORK ABILITY [None]
  - INSOMNIA [None]
  - INTESTINAL FUNCTIONAL DISORDER [None]
  - MUSCLE SPASMS [None]
  - MUSCLE TIGHTNESS [None]
  - NAUSEA [None]
  - NERVE INJURY [None]
  - NOSE DEFORMITY [None]
  - PAIN [None]
  - PAIN IN EXTREMITY [None]
  - PARALYSIS [None]
  - RHINORRHOEA [None]
  - SOMNOLENCE [None]
  - SPEECH DISORDER [None]
  - SPINAL DISORDER [None]
  - VISUAL DISTURBANCE [None]
  - VOMITING [None]
  - WEIGHT INCREASED [None]
  - WHITE BLOOD CELL COUNT INCREASED [None]
